FAERS Safety Report 5842898-6 (Version None)
Quarter: 2008Q3

REPORT INFORMATION
  Report Type: 
  Country: None (occurrence: None)
  Receive Date: 20080811
  Receipt Date: 20080731
  Transmission Date: 20090109
  Serious: Yes (Other)
  Sender: FDA-Public Use
  Company Number: SPV1-2008-01627

PATIENT
  Age: 7 Year
  Sex: Male
  Weight: 35.4 kg

DRUGS (2)
  1. VYVANSE [Suspect]
     Indication: ATTENTION DEFICIT/HYPERACTIVITY DISORDER
     Dosage: ORAL
     Route: 048
     Dates: start: 20080724, end: 20080725
  2. EX-LAX               /00064401/ (BISACODYL) [Concomitant]

REACTIONS (4)
  - AMNESIA [None]
  - EMOTIONAL DISORDER [None]
  - FEAR [None]
  - PARANOIA [None]
